FAERS Safety Report 20583231 (Version 1)
Quarter: 2022Q1

REPORT INFORMATION
  Report Type: Report from Study
  Country: IT (occurrence: IT)
  Receive Date: 20220311
  Receipt Date: 20220311
  Transmission Date: 20220423
  Serious: Yes (Other)
  Sender: FDA-Public Use
  Company Number: IT-002147023-NVSC2021IT209133

PATIENT
  Age: 78 Year
  Sex: Female
  Weight: 74 kg

DRUGS (20)
  1. BENDAMUSTINE HYDROCHLORIDE [Suspect]
     Active Substance: BENDAMUSTINE HYDROCHLORIDE
     Indication: Product used for unknown indication
     Dosage: (ADMINISTERED DAYS 1,2 EVERY CYCLE)
     Route: 042
     Dates: start: 20210525, end: 20210810
  2. BENDAMUSTINE HYDROCHLORIDE [Suspect]
     Active Substance: BENDAMUSTINE HYDROCHLORIDE
     Dosage: (ADMINISTERED DAYS 1,2 EVERY CYCLE)
     Route: 042
     Dates: end: 20211021
  3. BENDAMUSTINE HYDROCHLORIDE [Suspect]
     Active Substance: BENDAMUSTINE HYDROCHLORIDE
     Dosage: (ADMINISTERED DAYS 1,2 EVERY CYCLE)
     Route: 042
     Dates: end: 20211119
  4. FONDAPARINUX [Suspect]
     Active Substance: FONDAPARINUX
     Indication: Product used for unknown indication
     Route: 065
     Dates: start: 20210820, end: 20210913
  5. COPANLISIB [Suspect]
     Active Substance: COPANLISIB
     Indication: Product used for unknown indication
     Dosage: (ADMINISTERED ON DAYS 1, 8 AND 15 OF EVERY CYCLE)
     Route: 042
     Dates: start: 20210524, end: 20210816
  6. COPANLISIB [Suspect]
     Active Substance: COPANLISIB
     Dosage: (ADMINISTERED ON DAY 1,8,15 EVERY CYCLE)
     Route: 042
     Dates: end: 20211027
  7. COPANLISIB [Suspect]
     Active Substance: COPANLISIB
     Dosage: (ADMINISTERED ON DAYS 1, 8 AND 15 OF EVERY CYCLE)
     Route: 042
     Dates: end: 20211202
  8. RITUXIMAB [Suspect]
     Active Substance: RITUXIMAB
     Indication: Product used for unknown indication
     Dosage: (ON DAY 1 EVERY CYCLE)
     Route: 042
     Dates: start: 20210525, end: 20210809
  9. RITUXIMAB [Suspect]
     Active Substance: RITUXIMAB
     Dosage: (ON DAY 1 EVERY CYCLE)
     Route: 042
     Dates: end: 20211020
  10. RITUXIMAB [Suspect]
     Active Substance: RITUXIMAB
     Dosage: (ON DAY 1 EVERY CYCLE)
     Route: 042
     Dates: end: 20211118
  11. FLUCONAZOLE [Concomitant]
     Active Substance: FLUCONAZOLE
     Indication: Product used for unknown indication
     Route: 065
     Dates: start: 20210524, end: 20210906
  12. BACTRIM [Concomitant]
     Active Substance: SULFAMETHOXAZOLE\TRIMETHOPRIM
     Indication: Product used for unknown indication
     Route: 065
     Dates: start: 20210524, end: 20210906
  13. LANSOPRAZOLE [Concomitant]
     Active Substance: LANSOPRAZOLE
     Indication: Product used for unknown indication
     Route: 065
     Dates: start: 20210524
  14. ACYCLOVIR [Concomitant]
     Active Substance: ACYCLOVIR
     Indication: Product used for unknown indication
     Route: 065
     Dates: start: 20211118, end: 20211213
  15. FUROSEMIDE [Concomitant]
     Active Substance: FUROSEMIDE
     Indication: Product used for unknown indication
     Route: 065
     Dates: start: 20210126
  16. ERYTHROPOIETIN [Concomitant]
     Active Substance: ERYTHROPOIETIN
     Indication: Product used for unknown indication
     Route: 065
     Dates: start: 20210726
  17. CHOLECALCIFEROL [Concomitant]
     Active Substance: CHOLECALCIFEROL
     Indication: Product used for unknown indication
     Route: 065
  18. PERINDOPRIL [Concomitant]
     Active Substance: PERINDOPRIL
     Indication: Product used for unknown indication
     Route: 065
     Dates: start: 20210531
  19. PERINDOPRIL [Concomitant]
     Active Substance: PERINDOPRIL
     Route: 065
     Dates: start: 20210126
  20. MEDROL [Concomitant]
     Active Substance: METHYLPREDNISOLONE
     Indication: Product used for unknown indication
     Route: 065
     Dates: start: 20210809

REACTIONS (8)
  - Cytomegalovirus infection reactivation [Recovered/Resolved]
  - Rash maculo-papular [Recovered/Resolved]
  - Cytomegalovirus infection reactivation [Recovered/Resolved]
  - COVID-19 [Unknown]
  - Erythema [Recovered/Resolved]
  - Pruritus [Recovered/Resolved]
  - Rash maculo-papular [Recovered/Resolved]
  - Decreased appetite [Unknown]

NARRATIVE: CASE EVENT DATE: 20210829
